FAERS Safety Report 6529056 (Version 4)
Quarter: 2013Q1

REPORT INFORMATION
  Report Type: Spontaneous
  Country: FR (occurrence: FR)
  Receive Date: 20080117
  Receipt Date: 20130214
  Transmission Date: 20140127
  Serious: Yes (Congenital Anomaly, Other)
  Sender: FDA-Public Use
  Company Number: FR-RB-008878-08

PATIENT
  Sex: 0

DRUGS (2)
  1. SUBUTEX [Suspect]
     Indication: PRODUCT USED FOR UNKNOWN INDICATION
     Dosage: DOSAGE AND FREQUENCY UNKNOWN
     Route: 064
     Dates: end: 200702
  2. TEMGESIC [Suspect]
     Indication: PRODUCT USED FOR UNKNOWN INDICATION
     Dosage: DOSAGE AND FREQUENCY UNKNOWN
     Route: 064
     Dates: end: 200705

REACTIONS (3)
  - Hydronephrosis [Unknown]
  - Lymphocele [Unknown]
  - Foetal exposure during pregnancy [Recovered/Resolved]
